FAERS Safety Report 8505997-6 (Version None)
Quarter: 2012Q3

REPORT INFORMATION
  Report Type: 
  Country: None (occurrence: None)
  Receive Date: 20120712
  Receipt Date: 20120706
  Transmission Date: 20120928
  Serious: Yes (Other)
  Sender: FDA-Public Use
  Company Number: JP-GLAXOSMITHKLINE-B0813790A

PATIENT
  Age: 39 Year
  Sex: Female

DRUGS (3)
  1. LITHIUM CARBONATE [Concomitant]
     Route: 048
  2. LAMICTAL [Suspect]
     Indication: BIPOLAR DISORDER
     Dosage: 12.5MG ALTERNATE DAYS
     Route: 048
  3. VALPROATE SODIUM [Concomitant]
     Route: 048

REACTIONS (4)
  - C-REACTIVE PROTEIN INCREASED [None]
  - PYREXIA [None]
  - WHITE BLOOD CELL COUNT DECREASED [None]
  - PLATELET COUNT DECREASED [None]
